FAERS Safety Report 8802621 (Version 1)
Quarter: 2012Q4

REPORT INFORMATION
  Report Type: 
  Country: SG (occurrence: SG)
  Receive Date: 20120921
  Receipt Date: 20120921
  Transmission Date: 20130627
  Serious: Yes (Other)
  Sender: FDA-Public Use
  Company Number: SG-UCBSA-066430

PATIENT

DRUGS (3)
  1. OMEPRAZOLE [Suspect]
     Dosage: UNKNOWN
     Dates: start: 20120724, end: 20120823
  2. AMOXICILLIN TRIHYDRATE [Suspect]
     Dosage: DAILY DOSE: 4 GM
     Route: 048
     Dates: start: 20120727, end: 20120802
  3. CLARITHROMYCIN [Suspect]
     Dosage: DAILY DOSE: 500 MG, OM
     Route: 048

REACTIONS (1)
  - Rash [Unknown]
